FAERS Safety Report 20329390 (Version 1)
Quarter: 2022Q1

REPORT INFORMATION
  Report Type: Spontaneous
  Country: US (occurrence: None)
  Receive Date: 20220112
  Receipt Date: 20220112
  Transmission Date: 20220424
  Serious: Yes (Other)
  Sender: FDA-Public Use
  Company Number: None

PATIENT
  Age: 68 Year
  Sex: Male
  Weight: 77.3 kg

DRUGS (1)
  1. PRIVIGEN [Suspect]
     Active Substance: HUMAN IMMUNOGLOBULIN G
     Dosage: OTHER FREQUENCY : ONCE;?
     Route: 042
     Dates: start: 20220107

REACTIONS (4)
  - Swollen tongue [None]
  - Swelling face [None]
  - Eye swelling [None]
  - Eye pruritus [None]

NARRATIVE: CASE EVENT DATE: 20220107
